FAERS Safety Report 25128770 (Version 2)
Quarter: 2025Q2

REPORT INFORMATION
  Report Type: Report from Study
  Country: US (occurrence: US)
  Receive Date: 20250327
  Receipt Date: 20250404
  Transmission Date: 20250716
  Serious: Yes (Hospitalization)
  Sender: ABBVIE
  Company Number: US-ABBVIE-6193907

PATIENT
  Age: 73 Year
  Sex: Female

DRUGS (1)
  1. HUMIRA [Suspect]
     Active Substance: ADALIMUMAB
     Indication: Rheumatoid arthritis
     Route: 058
     Dates: start: 20241024

REACTIONS (7)
  - Chronic obstructive pulmonary disease [Unknown]
  - White blood cell count increased [Unknown]
  - Diarrhoea [Unknown]
  - Dyspnoea [Unknown]
  - Device issue [Not Recovered/Not Resolved]
  - Pneumonia bacterial [Recovering/Resolving]
  - Injection site discharge [Not Recovered/Not Resolved]

NARRATIVE: CASE EVENT DATE: 20250321
